FAERS Safety Report 18905551 (Version 4)
Quarter: 2021Q2

REPORT INFORMATION
  Report Type: Report from Study
  Country: None (occurrence: US)
  Receive Date: 20210217
  Receipt Date: 20210602
  Transmission Date: 20210717
  Serious: Yes (Hospitalization)
  Sender: FDA-Public Use
  Company Number: US-ABBVIE-21K-163-3777277-00

PATIENT
  Age: 84 Year
  Sex: Female
  Weight: 63.56 kg

DRUGS (8)
  1. LATANOPROST. [Concomitant]
     Active Substance: LATANOPROST
     Indication: EYE DROP INSTILLATION
  2. COUMADIN [Concomitant]
     Active Substance: WARFARIN SODIUM
     Indication: DEATH
  3. ATORVASTATIN [Concomitant]
     Active Substance: ATORVASTATIN
     Indication: BLOOD CHOLESTEROL
  4. TYLENOL [Concomitant]
     Active Substance: ACETAMINOPHEN
     Indication: PAIN
  5. AMLODIPINE [Concomitant]
     Active Substance: AMLODIPINE BESYLATE
     Indication: BLOOD PRESSURE MEASUREMENT
  6. WARFARIN [Concomitant]
     Active Substance: WARFARIN
     Indication: CARDIAC DISORDER
  7. HUMIRA [Suspect]
     Active Substance: ADALIMUMAB
     Indication: RHEUMATOID ARTHRITIS
     Dosage: CITRATE FREE
     Route: 058
     Dates: start: 2004
  8. HUMIRA [Suspect]
     Active Substance: ADALIMUMAB
     Dosage: CITRATE FREE
     Route: 058

REACTIONS (8)
  - Pelvic fracture [Recovered/Resolved]
  - Colitis [Recovered/Resolved]
  - SARS-CoV-2 test positive [Recovered/Resolved]
  - Gastrointestinal infection [Recovered/Resolved]
  - Limb injury [Unknown]
  - Knee deformity [Unknown]
  - Fall [Recovered/Resolved]
  - Gastric disorder [Unknown]

NARRATIVE: CASE EVENT DATE: 2020
